FAERS Safety Report 9510642 (Version 2)
Quarter: 2013Q4

REPORT INFORMATION
  Report Type: Spontaneous
  Country: IT (occurrence: IT)
  Receive Date: 20130909
  Receipt Date: 20131025
  Transmission Date: 20140711
  Serious: Yes (Other)
  Sender: FDA-Public Use
  Company Number: IT-ACTAVIS-2013-15842

PATIENT
  Age: 48 Year
  Sex: Male

DRUGS (2)
  1. IBUPROFEN [Suspect]
     Indication: BACK PAIN
     Dosage: 1200 MG, DAILY
     Route: 048
     Dates: start: 20130607, end: 20130613
  2. ISONIAZID (WATSON LABORATORIES) [Suspect]
     Indication: TUBERCULOSIS
     Dosage: 300 MG, DAILY
     Route: 048
     Dates: start: 20130413, end: 20130613

REACTIONS (1)
  - Drug-induced liver injury [Not Recovered/Not Resolved]
